FAERS Safety Report 9025390 (Version 1)
Quarter: 2013Q1

REPORT INFORMATION
  Report Type: Report from Study
  Country: FR (occurrence: FR)
  Receive Date: 20130122
  Receipt Date: 20130122
  Transmission Date: 20140127
  Serious: Yes (Hospitalization)
  Sender: FDA-Public Use
  Company Number: FR-PFIZER INC-2013023457

PATIENT
  Age: 81 Year
  Sex: Male
  Weight: 87 kg

DRUGS (2)
  1. TORISEL [Suspect]
     Indication: MANTLE CELL LYMPHOMA
     Dosage: 75 TO 25 MG WEEKLY
     Dates: start: 20091016, end: 20100506
  2. TORISEL [Suspect]
     Dosage: 75 TO 25 MG WEEKLY
     Dates: start: 20120223, end: 20120413

REACTIONS (2)
  - Abdominal pain [Recovered/Resolved]
  - Hyperthermia [Recovered/Resolved]
